FAERS Safety Report 4742208-1 (Version None)
Quarter: 2005Q3

REPORT INFORMATION
  Report Type: 
  Country: None (occurrence: None)
  Receive Date: 20050811
  Receipt Date: 20050321
  Transmission Date: 20060218
  Serious: No
  Sender: FDA-Public Use
  Company Number: US-GLAXOSMITHKLINE-A0550626A

PATIENT
  Age: 50 Year
  Sex: Male
  Weight: 86.4 kg

DRUGS (2)
  1. PAXIL CR [Suspect]
     Route: 048
     Dates: start: 20021101, end: 20050219
  2. ATIVAN [Concomitant]

REACTIONS (3)
  - EJACULATION DISORDER [None]
  - ERECTILE DYSFUNCTION [None]
  - LIBIDO DECREASED [None]
